FAERS Safety Report 19489894 (Version 6)
Quarter: 2022Q3

REPORT INFORMATION
  Report Type: Spontaneous
  Country: JP (occurrence: JP)
  Receive Date: 20210704
  Receipt Date: 20220901
  Transmission Date: 20221026
  Serious: Yes (Hospitalization, Other)
  Sender: FDA-Public Use
  Company Number: JP-BRISTOL-MYERS SQUIBB COMPANY-BMS-2021-063325

PATIENT
  Age: 9 Decade
  Sex: Male

DRUGS (2)
  1. YERVOY [Suspect]
     Active Substance: IPILIMUMAB
     Indication: Metastatic renal cell carcinoma
     Dosage: UNK
     Route: 041
     Dates: start: 2019
  2. OPDIVO [Suspect]
     Active Substance: NIVOLUMAB
     Indication: Metastatic renal cell carcinoma
     Dosage: UNK
     Route: 041
     Dates: start: 2019

REACTIONS (4)
  - Myocardial infarction [Unknown]
  - Arrhythmia [Unknown]
  - Interstitial lung disease [Unknown]
  - Herpes zoster [Unknown]
